FAERS Safety Report 8589819-3 (Version None)
Quarter: 2012Q3

REPORT INFORMATION
  Report Type: 
  Country: None (occurrence: None)
  Receive Date: 20120813
  Receipt Date: 20120808
  Transmission Date: 20120928
  Serious: Yes (Hospitalization)
  Sender: FDA-Public Use
  Company Number: CH-MSD-1207CHE007180

PATIENT

DRUGS (6)
  1. FOSRENOL [Concomitant]
     Indication: RENAL FAILURE CHRONIC
     Dosage: 750 MG, DAILY
     Route: 048
     Dates: start: 20120416
  2. CALCIUM (UNSPECIFIED) [Concomitant]
     Indication: ELECTROLYTE IMBALANCE
     Dosage: 1 G, UNK
     Route: 048
     Dates: start: 20120416
  3. ENALAPRIL MALEATE [Concomitant]
     Indication: ESSENTIAL HYPERTENSION
     Dosage: 10 MG, UNK
     Route: 048
  4. METOPROLOL TARTRATE [Concomitant]
     Indication: ESSENTIAL HYPERTENSION
     Dosage: 25 MG, UNK
     Route: 048
  5. JANUVIA [Suspect]
     Indication: TYPE 2 DIABETES MELLITUS
     Dosage: 50 MG, QD
     Route: 048
     Dates: start: 20110118, end: 20120711
  6. EZETIMIBE [Concomitant]
     Indication: HYPERLIPIDAEMIA
     Dosage: 10 MG, UNK
     Route: 048

REACTIONS (2)
  - ANAEMIA [None]
  - HYPOGLYCAEMIA [None]
